FAERS Safety Report 7130555-8 (Version None)
Quarter: 2010Q4

REPORT INFORMATION
  Report Type: 
  Country: None (occurrence: None)
  Receive Date: 20101201
  Receipt Date: 20101124
  Transmission Date: 20110411
  Serious: Yes (Other)
  Sender: FDA-Public Use
  Company Number: US-SANOFI-AVENTIS-2010SA072408

PATIENT
  Age: 74 Year
  Sex: Female

DRUGS (10)
  1. MULTAQ [Suspect]
     Indication: ATRIAL FIBRILLATION
     Route: 048
     Dates: start: 20101101, end: 20101101
  2. MULTAQ [Suspect]
     Route: 048
     Dates: start: 20101101, end: 20101101
  3. VICODIN [Concomitant]
  4. SIMVASTATIN [Concomitant]
  5. AMLODIPINE [Concomitant]
  6. LISINOPRIL [Concomitant]
  7. METOPROLOL [Concomitant]
  8. METFORMIN HCL [Concomitant]
  9. MECLIZINE [Concomitant]
  10. GLYBURIDE [Concomitant]

REACTIONS (3)
  - ATRIAL FIBRILLATION [None]
  - DIZZINESS [None]
  - HALLUCINATION [None]
